FAERS Safety Report 13447340 (Version 1)
Quarter: 2017Q2

REPORT INFORMATION
  Report Type: Spontaneous
  Country: US (occurrence: US)
  Receive Date: 20170416
  Receipt Date: 20170416
  Transmission Date: 20170830
  Serious: Yes (Other)
  Sender: FDA-Public Use
  Company Number: None

PATIENT
  Age: 43 Year
  Sex: Male
  Weight: 74.25 kg

DRUGS (2)
  1. XIIDRA [Suspect]
     Active Substance: LIFITEGRAST
     Indication: DRY EYE
     Dosage: ?          QUANTITY:30 DROP(S);?
     Route: 047
     Dates: start: 20170408, end: 20170408
  2. ALIEVE [Concomitant]

REACTIONS (1)
  - Sinus pain [None]

NARRATIVE: CASE EVENT DATE: 20170412
